FAERS Safety Report 12522408 (Version 1)
Quarter: 2016Q3

REPORT INFORMATION
  Report Type: Spontaneous
  Country: SE (occurrence: SE)
  Receive Date: 20160701
  Receipt Date: 20160701
  Transmission Date: 20161109
  Serious: Yes (Hospitalization)
  Sender: FDA-Public Use
  Company Number: SE-MYLANLABS-2016M1027363

PATIENT

DRUGS (4)
  1. SOFOSBUVIR [Suspect]
     Active Substance: SOFOSBUVIR
     Indication: ANTIVIRAL TREATMENT
     Route: 065
  2. NIFEDIPINE. [Suspect]
     Active Substance: NIFEDIPINE
     Indication: HYPERTENSION
     Route: 065
  3. SIMEPREVIR [Interacting]
     Active Substance: SIMEPREVIR
     Indication: ANTIVIRAL TREATMENT
     Route: 065
  4. TACROLIMUS. [Concomitant]
     Active Substance: TACROLIMUS
     Indication: IMMUNOSUPPRESSANT DRUG THERAPY
     Route: 065

REACTIONS (4)
  - Drug administered to patient of inappropriate age [Unknown]
  - Oedema peripheral [Recovered/Resolved]
  - Drug interaction [Recovered/Resolved]
  - Weight increased [Recovered/Resolved]
